FAERS Safety Report 12431693 (Version 1)
Quarter: 2016Q2

REPORT INFORMATION
  Report Type: Spontaneous
  Country: US (occurrence: None)
  Receive Date: 20160602
  Receipt Date: 20160602
  Transmission Date: 20160815
  Serious: Yes (Life-Threatening, Hospitalization, Disabling)
  Sender: FDA-Public Use
  Company Number: None

PATIENT
  Age: 50 Year
  Sex: Female
  Weight: 83.92 kg

DRUGS (10)
  1. CALCIUM [Concomitant]
     Active Substance: CALCIUM
  2. STOOL SOFTENER [Suspect]
     Active Substance: DOCUSATE CALCIUM
  3. LISINOPRIL. [Concomitant]
     Active Substance: LISINOPRIL
  4. TYLENOL [Concomitant]
     Active Substance: ACETAMINOPHEN
  5. VITAMIN C [Concomitant]
     Active Substance: ASCORBIC ACID
  6. CIPRO [Suspect]
     Active Substance: CIPROFLOXACIN HYDROCHLORIDE
     Indication: URINARY TRACT INFECTION
     Route: 048
     Dates: start: 20140822, end: 20140825
  7. BLACK COHASH [Concomitant]
  8. FISH OIL [Concomitant]
     Active Substance: FISH OIL
  9. VIT. D [Concomitant]
  10. COQ10 [Concomitant]
     Active Substance: UBIDECARENONE

REACTIONS (5)
  - Blood pressure increased [None]
  - Muscular weakness [None]
  - Hypoaesthesia [None]
  - Paraesthesia [None]
  - Guillain-Barre syndrome [None]

NARRATIVE: CASE EVENT DATE: 20140822
